FAERS Safety Report 8017175-8 (Version None)
Quarter: 2012Q1

REPORT INFORMATION
  Report Type: 
  Country: None (occurrence: None)
  Receive Date: 20120102
  Receipt Date: 20111220
  Transmission Date: 20120608
  Serious: Yes (Other)
  Sender: FDA-Public Use
  Company Number: US-ROCHE-795850

PATIENT
  Sex: Female
  Weight: 72.64 kg

DRUGS (5)
  1. ORTHO-CEPT [Concomitant]
     Indication: CONTRACEPTION
  2. ACCUTANE [Suspect]
  3. ORTHO-CEPT [Concomitant]
     Indication: ACNE
  4. ACCUTANE [Suspect]
     Indication: ACNE
     Dosage: 40 MG EVERY DAY ALTERNATING WITH 80 MG
     Route: 048
     Dates: start: 19971126, end: 19980401
  5. ACCUTANE [Suspect]
     Dates: start: 20080313, end: 20080901

REACTIONS (10)
  - IRRITABLE BOWEL SYNDROME [None]
  - EPISTAXIS [None]
  - BLOOD TRIGLYCERIDES INCREASED [None]
  - PANIC ATTACK [None]
  - RASH [None]
  - COLITIS ULCERATIVE [None]
  - ATTENTION DEFICIT/HYPERACTIVITY DISORDER [None]
  - HAEMORRHOIDS [None]
  - DEPRESSION [None]
  - PRURITUS [None]
